FAERS Safety Report 12089699 (Version 1)
Quarter: 2016Q1

REPORT INFORMATION
  Report Type: Spontaneous
  Country: US (occurrence: US)
  Receive Date: 20160218
  Receipt Date: 20160218
  Transmission Date: 20160526
  Serious: No
  Sender: FDA-Public Use
  Company Number: US-PFIZER INC-2016075384

PATIENT
  Age: 6 Decade
  Sex: Female

DRUGS (4)
  1. LYRICA [Suspect]
     Active Substance: PREGABALIN
     Indication: HYPOAESTHESIA
     Dosage: 75 MG, 2X/DAY (TAKES ONE CAPSULE IN THE MORNING AND ONE CAPSULE AT NIGHT)
     Route: 048
  2. CRESTOR [Concomitant]
     Active Substance: ROSUVASTATIN CALCIUM
     Indication: BLOOD CHOLESTEROL ABNORMAL
     Dosage: 10 MG, 1X/DAY
     Route: 048
  3. LYRICA [Suspect]
     Active Substance: PREGABALIN
     Indication: NEURALGIA
     Dosage: 50MG CAPSULES 1 CAPSULE IN THE MORNING AND 2 CAPSULES AT NIGHT
     Route: 048
  4. LYRICA [Suspect]
     Active Substance: PREGABALIN
     Indication: BONE DISORDER

REACTIONS (5)
  - Pain [Unknown]
  - Drug dose omission [Unknown]
  - Weight increased [Unknown]
  - Dry skin [Unknown]
  - Hypoaesthesia [Unknown]
